FAERS Safety Report 10977710 (Version 1)
Quarter: 2015Q2

REPORT INFORMATION
  Report Type: Spontaneous
  Country: US (occurrence: None)
  Receive Date: 20150401
  Receipt Date: 20150401
  Transmission Date: 20150821
  Serious: Yes (Life-Threatening)
  Sender: FDA-Public Use
  Company Number: None

PATIENT
  Age: 75 Year
  Sex: Female

DRUGS (6)
  1. FOSAMAX [Suspect]
     Active Substance: ALENDRONATE SODIUM
  2. PRAVASTATIN [Suspect]
     Active Substance: PRAVASTATIN\PRAVASTATIN SODIUM
  3. OXYBUTIN [Suspect]
     Active Substance: OXYBUTYNIN
  4. BACTONEL [Concomitant]
  5. DETROL LA [Suspect]
     Active Substance: TOLTERODINE TARTRATE
     Indication: HYPERTONIC BLADDER
     Dosage: 1 PILL ONCE OR TWICE DAILY
     Route: 048
     Dates: start: 20130330, end: 20130415
  6. ZETIA [Concomitant]
     Active Substance: EZETIMIBE

REACTIONS (10)
  - Chest pain [None]
  - Pain [None]
  - Throat irritation [None]
  - Fatigue [None]
  - Amnesia [None]
  - Gastrooesophageal reflux disease [None]
  - Flatulence [None]
  - Joint swelling [None]
  - Arthralgia [None]
  - Musculoskeletal chest pain [None]
